FAERS Safety Report 21762888 (Version 1)
Quarter: 2022Q4

REPORT INFORMATION
  Report Type: Spontaneous
  Country: US (occurrence: None)
  Receive Date: 20221220
  Receipt Date: 20221220
  Transmission Date: 20230113
  Serious: Yes (Death)
  Sender: FDA-Public Use
  Company Number: None

PATIENT
  Age: 68 Year
  Sex: Female
  Weight: 62.6 kg

DRUGS (4)
  1. ERLOTINIB [Suspect]
     Active Substance: ERLOTINIB
     Indication: Vulval cancer
     Dosage: FREQUENCY : DAILY;?
     Route: 048
  2. TEMAZEPAM [Concomitant]
     Active Substance: TEMAZEPAM
  3. ATIVAN [Concomitant]
     Active Substance: LORAZEPAM
  4. PROCHLORPERAZINE [Concomitant]
     Active Substance: PROCHLORPERAZINE

REACTIONS (1)
  - Death [None]
